FAERS Safety Report 16131788 (Version 4)
Quarter: 2021Q1

REPORT INFORMATION
  Report Type: Other
  Country: CA (occurrence: CA)
  Receive Date: 20190329
  Receipt Date: 20210204
  Transmission Date: 20210419
  Serious: Yes (Hospitalization, Other)
  Sender: FDA-Public Use
  Company Number: CA-ROCHE-2291347

PATIENT
  Age: 50 Year
  Sex: Male

DRUGS (12)
  1. DEXILANT [Concomitant]
     Active Substance: DEXLANSOPRAZOLE
     Dosage: ONGOING :YES
  2. EURO D [Concomitant]
     Dosage: ONGOING:YES
  3. OCREVUS [Suspect]
     Active Substance: OCRELIZUMAB
     Indication: RELAPSING-REMITTING MULTIPLE SCLEROSIS
     Dosage: AT DAY 0 AND 14, THEN 600 MG EVERY 6 MONTH?NEXT INFUSION:  06/AUG/2019
     Route: 042
     Dates: start: 20180807
  4. GABAPENTIN. [Concomitant]
     Active Substance: GABAPENTIN
     Indication: PRODUCT USED FOR UNKNOWN INDICATION
     Dosage: ONGOING
  5. ASAPHEN [Concomitant]
     Active Substance: ASPIRIN
     Dosage: ONGOING: YES
  6. METOPROLOL. [Concomitant]
     Active Substance: METOPROLOL
     Dosage: ONGOING:YES
  7. ATORVASTATIN [Concomitant]
     Active Substance: ATORVASTATIN
     Dosage: ONGOING:YES
  8. GABAPENTIN. [Concomitant]
     Active Substance: GABAPENTIN
     Dosage: AT NIGHT,ONGOING: YES
  9. AMLODIPINE [Concomitant]
     Active Substance: AMLODIPINE BESYLATE
     Dosage: ONGOING: YES
  10. DIOVAN [Concomitant]
     Active Substance: VALSARTAN
  11. ZOPICLONE [Concomitant]
     Active Substance: ZOPICLONE
     Dosage: AS NEEDED
  12. CBD OIL [Concomitant]
     Active Substance: CANNABIDIOL\HERBALS
     Dosage: AS NEEDED

REACTIONS (2)
  - Appendicitis perforated [Recovered/Resolved]
  - Multiple sclerosis [Not Recovered/Not Resolved]

NARRATIVE: CASE EVENT DATE: 201903
